FAERS Safety Report 5874280-X (Version None)
Quarter: 2008Q3

REPORT INFORMATION
  Report Type: 
  Country: None (occurrence: None)
  Receive Date: 20080908
  Receipt Date: 20080904
  Transmission Date: 20090109
  Serious: Yes (Life-Threatening, Hospitalization)
  Sender: FDA-Public Use
  Company Number: CH-ASTRAZENECA-2008PK01974

PATIENT
  Age: 28 Year
  Sex: Female

DRUGS (5)
  1. SEROQUEL [Suspect]
     Indication: DISTURBANCE IN ATTENTION
     Route: 048
     Dates: start: 20080613, end: 20080801
  2. SEROQUEL [Suspect]
     Route: 048
     Dates: end: 20080812
  3. CONCERTA [Suspect]
     Indication: DISTURBANCE IN ATTENTION
     Route: 048
     Dates: start: 20070504, end: 20080801
  4. MIDAZOLAM HCL [Concomitant]
     Indication: INSOMNIA
     Route: 048
     Dates: start: 20070501
  5. TRAMAL [Concomitant]
     Indication: NECK PAIN
     Route: 048
     Dates: start: 20041101

REACTIONS (4)
  - ABDOMINAL PAIN UPPER [None]
  - FATIGUE [None]
  - HEPATOCELLULAR INJURY [None]
  - NAUSEA [None]
